FAERS Safety Report 11382922 (Version 1)
Quarter: 2015Q3

REPORT INFORMATION
  Report Type: Spontaneous
  Country: US (occurrence: US)
  Receive Date: 20150814
  Receipt Date: 20150814
  Transmission Date: 20151125
  Serious: No
  Sender: FDA-Public Use
  Company Number: US-ASTRAZENECA-2015SE75696

PATIENT
  Sex: Female
  Weight: 63.5 kg

DRUGS (2)
  1. SPIRVIA [Concomitant]
     Indication: CHRONIC OBSTRUCTIVE PULMONARY DISEASE
     Dosage: 1 DAILY
     Dates: start: 2012
  2. SYMBICORT [Suspect]
     Active Substance: BUDESONIDE\FORMOTEROL FUMARATE DIHYDRATE
     Indication: CHRONIC OBSTRUCTIVE PULMONARY DISEASE
     Dosage: 160/4.5 MCG, 320 UG TWO PUFFS, TWO TIMES A DAY
     Route: 055
     Dates: start: 2013

REACTIONS (3)
  - Anxiety [Unknown]
  - Drug dose omission [Unknown]
  - Product quality issue [Unknown]
